FAERS Safety Report 21440451 (Version 1)
Quarter: 2022Q4

REPORT INFORMATION
  Report Type: Report from Study
  Country: US (occurrence: US)
  Receive Date: 20221011
  Receipt Date: 20221011
  Transmission Date: 20230112
  Serious: No
  Sender: FDA-Public Use
  Company Number: US-AMNEAL PHARMACEUTICALS-2022-AMRX-02717

PATIENT
  Age: 68 Year
  Sex: Male

DRUGS (4)
  1. LIORESAL [Suspect]
     Active Substance: BACLOFEN
     Indication: Muscle spasticity
     Dosage: 610.567 ?G, \DAY
     Route: 037
     Dates: start: 20211101, end: 20211216
  2. LIORESAL [Suspect]
     Active Substance: BACLOFEN
     Indication: Muscle spasms
     Dosage: INCREASED
     Route: 037
     Dates: start: 20211216, end: 20220110
  3. LIORESAL [Suspect]
     Active Substance: BACLOFEN
     Dosage: INCREASED
     Route: 037
     Dates: start: 20220110, end: 20220223
  4. LIORESAL [Suspect]
     Active Substance: BACLOFEN
     Dosage: INCREASED
     Dates: start: 20220223

REACTIONS (5)
  - Muscle spasms [Recovered/Resolved]
  - Muscle spasticity [Recovered/Resolved]
  - Tremor [Recovered/Resolved]
  - Muscle tightness [Recovered/Resolved]
  - Discomfort [Recovered/Resolved]

NARRATIVE: CASE EVENT DATE: 20211216
